FAERS Safety Report 6566807-X (Version None)
Quarter: 2010Q1

REPORT INFORMATION
  Report Type: 
  Country: None (occurrence: None)
  Receive Date: 20100127
  Receipt Date: 20091211
  Transmission Date: 20100710
  Serious: Yes (Death, Life-Threatening, Hospitalization)
  Sender: FDA-Public Use
  Company Number: DSA_41911_2009

PATIENT
  Sex: Female
  Weight: 48.0813 kg

DRUGS (8)
  1. XENAZINE [Suspect]
     Indication: HUNTINGTON'S CHOREA
     Dosage: 25 MG BID ORAL, 25 MG BID ORAL (DF)
     Route: 048
     Dates: start: 20090422, end: 20090501
  2. ATIVAN [Concomitant]
  3. CHLORHEXIDINE GLUCONATE [Concomitant]
  4. CALCIUM WITH VITAMIN D [Concomitant]
  5. MULTIVITAMIN /01229101/ [Concomitant]
  6. ZOLOFT [Concomitant]
  7. VITAMIN E [Concomitant]
  8. DIAZEPAM [Concomitant]

REACTIONS (11)
  - AGGRESSION [None]
  - BLOOD SODIUM INCREASED [None]
  - BLOOD UREA INCREASED [None]
  - COGNITIVE DISORDER [None]
  - CONDITION AGGRAVATED [None]
  - CONVULSION [None]
  - DYSPHAGIA [None]
  - HYPOPHAGIA [None]
  - LETHARGY [None]
  - PHARYNGITIS [None]
  - PNEUMONIA ASPIRATION [None]
